FAERS Safety Report 7994988-X (Version None)
Quarter: 2011Q4

REPORT INFORMATION
  Report Type: 
  Country: None (occurrence: None)
  Receive Date: 20111220
  Receipt Date: 20111213
  Transmission Date: 20120403
  Serious: Yes (Other)
  Sender: FDA-Public Use
  Company Number: US-US-EMD SERONO, INC.-7101676

PATIENT
  Sex: Female

DRUGS (2)
  1. REBIF [Suspect]
     Indication: PRODUCT USED FOR UNKNOWN INDICATION
     Route: 058
     Dates: start: 20110506
  2. REBIF [Suspect]
     Route: 058

REACTIONS (6)
  - GALLBLADDER DISORDER [None]
  - DIZZINESS [None]
  - BALANCE DISORDER [None]
  - AFFECT LABILITY [None]
  - APPENDIX DISORDER [None]
  - HYPERHIDROSIS [None]
